FAERS Safety Report 17306240 (Version 1)
Quarter: 2020Q1

REPORT INFORMATION
  Report Type: Spontaneous
  Country: US (occurrence: US)
  Receive Date: 20200123
  Receipt Date: 20200123
  Transmission Date: 20200409
  Serious: No
  Sender: FDA-Public Use
  Company Number: US-US WORLDMEDS, LLC-USW201909-001758

PATIENT

DRUGS (2)
  1. BOTULINUM TOXIN TYPE B [Suspect]
     Active Substance: RIMABOTULINUMTOXINB
     Indication: SALIVARY HYPERSECRETION
     Dosage: 2500 UNITS
  2. BOTULINUM TOXIN TYPE B [Suspect]
     Active Substance: RIMABOTULINUMTOXINB
     Dosage: 3700 UNITS

REACTIONS (2)
  - Overdose [Unknown]
  - Therapeutic product effect decreased [Unknown]
